FAERS Safety Report 7538033-9 (Version None)
Quarter: 2011Q2

REPORT INFORMATION
  Report Type: 
  Country: None (occurrence: None)
  Receive Date: 20110609
  Receipt Date: 20110606
  Transmission Date: 20111010
  Serious: Yes (Other)
  Sender: FDA-Public Use
  Company Number: US-PFIZER INC-2011123059

PATIENT
  Sex: Female
  Weight: 53.061 kg

DRUGS (5)
  1. WELLBUTRIN [Concomitant]
     Indication: DEPRESSION
     Dosage: 150 MG, 3X/DAY
  2. NEURONTIN [Suspect]
     Indication: INTERVERTEBRAL DISC DISORDER
  3. CLONAZEPAM [Concomitant]
     Indication: INSOMNIA
     Dosage: 2 MG, UNK
  4. ADVAIR DISKUS 100/50 [Concomitant]
     Indication: ASTHMA
     Dosage: 250/50, 2X/DAY
  5. NEURONTIN [Suspect]
     Indication: NECK PAIN
     Dosage: UNK, 2X/DAY
     Route: 048

REACTIONS (2)
  - ASPARTATE AMINOTRANSFERASE ABNORMAL [None]
  - ASPARTATE AMINOTRANSFERASE INCREASED [None]
